FAERS Safety Report 6111754-0 (Version None)
Quarter: 2009Q1

REPORT INFORMATION
  Report Type: 
  Country: None (occurrence: None)
  Receive Date: 20090309
  Receipt Date: 20090216
  Transmission Date: 20090719
  Serious: Yes (Other)
  Sender: FDA-Public Use
  Company Number: 000430

PATIENT
  Sex: Female
  Weight: 132.6 kg

DRUGS (9)
  1. LACOSAMIDE [Suspect]
     Indication: EPILEPSY
     Dosage: (50 MG QD ORAL), (100 MG BID ORAL), (50 MG QD ORAL)
     Route: 048
     Dates: start: 20090120, end: 20090124
  2. LACOSAMIDE [Suspect]
     Indication: EPILEPSY
     Dosage: (50 MG QD ORAL), (100 MG BID ORAL), (50 MG QD ORAL)
     Route: 048
     Dates: start: 20090125, end: 20090128
  3. LACOSAMIDE [Suspect]
     Indication: EPILEPSY
     Dosage: (50 MG QD ORAL), (100 MG BID ORAL), (50 MG QD ORAL)
     Route: 048
     Dates: start: 20090129, end: 20090129
  4. LAMOTRIGINE [Concomitant]
  5. KEPPRA [Concomitant]
  6. PHENHYDAN /00017401/ [Concomitant]
  7. LUMINAL /00023201/ [Concomitant]
  8. FRISIUM [Concomitant]
  9. ZONEGRAN [Concomitant]

REACTIONS (2)
  - DRUG EXPOSURE DURING PREGNANCY [None]
  - PREGNANCY ON CONTRACEPTIVE [None]
